FAERS Safety Report 24779181 (Version 6)
Quarter: 2025Q3

REPORT INFORMATION
  Report Type: Report from Study
  Country: US (occurrence: US)
  Receive Date: 20241226
  Receipt Date: 20250904
  Transmission Date: 20251021
  Serious: Yes (Other)
  Sender: TAKEDA
  Company Number: US-TAKEDA-2024TUS129041

PATIENT
  Age: 53 Year
  Sex: Female

DRUGS (7)
  1. VEDOLIZUMAB [Suspect]
     Active Substance: VEDOLIZUMAB
     Indication: Colitis ulcerative
     Dosage: 108 MILLIGRAM, Q2WEEKS
     Dates: start: 202001
  2. VEDOLIZUMAB [Suspect]
     Active Substance: VEDOLIZUMAB
     Indication: Gastrooesophageal reflux disease
     Dosage: 108 MILLIGRAM, Q2WEEKS
  3. TELMISARTAN [Concomitant]
     Active Substance: TELMISARTAN
     Dosage: 40 MILLIGRAM, QD
     Dates: start: 2005
  4. CHLORTHALIDONE [Concomitant]
     Active Substance: CHLORTHALIDONE
     Dosage: 25 MILLIGRAM, QD
     Dates: start: 2005
  5. POTASSIUM CITRATE [Concomitant]
     Active Substance: POTASSIUM CITRATE
     Dosage: 15 MILLIEQUIVALENT, QD
     Dates: start: 202503, end: 20250410
  6. DICLOFENAC [Concomitant]
     Active Substance: DICLOFENAC
     Dosage: 50 MILLIGRAM, QD
     Dates: start: 202412, end: 202501
  7. OXYCODONE [Concomitant]
     Active Substance: OXYCODONE

REACTIONS (6)
  - Colitis ulcerative [Unknown]
  - Nephrolithiasis [Recovered/Resolved]
  - Asthenia [Not Recovered/Not Resolved]
  - Balance disorder [Unknown]
  - Depression [Unknown]
  - Loss of personal independence in daily activities [Unknown]

NARRATIVE: CASE EVENT DATE: 20200101
